FAERS Safety Report 22253445 (Version 1)
Quarter: 2023Q2

REPORT INFORMATION
  Report Type: Report from Study
  Country: US (occurrence: US)
  Receive Date: 20230426
  Receipt Date: 20230426
  Transmission Date: 20230722
  Serious: Yes (Other)
  Sender: FDA-Public Use
  Company Number: US-ABBVIE-4739069

PATIENT
  Age: 43 Year
  Sex: Female

DRUGS (1)
  1. HUMIRA [Suspect]
     Active Substance: ADALIMUMAB
     Indication: Psoriasis
     Route: 058
     Dates: start: 20120420, end: 20180421

REACTIONS (3)
  - Immunodeficiency [Unknown]
  - Visual impairment [Unknown]
  - H1N1 influenza [Unknown]

NARRATIVE: CASE EVENT DATE: 20180421
